FAERS Safety Report 8382958-1 (Version None)
Quarter: 2012Q2

REPORT INFORMATION
  Report Type: 
  Country: None (occurrence: None)
  Receive Date: 20120524
  Receipt Date: 20120131
  Transmission Date: 20120825
  Serious: No
  Sender: FDA-Public Use
  Company Number: US-ALLERGAN-1115349US

PATIENT
  Age: 86 Year
  Sex: Female

DRUGS (1)
  1. LASTACAFT [Suspect]
     Indication: CONJUNCTIVITIS
     Dosage: 2 GTT, QD
     Route: 047
     Dates: start: 20111001, end: 20111122

REACTIONS (3)
  - ERYTHEMA OF EYELID [None]
  - EYE PRURITUS [None]
  - EYE IRRITATION [None]
